FAERS Safety Report 13106415 (Version 2)
Quarter: 2017Q1

REPORT INFORMATION
  Report Type: Report from Study
  Country: US (occurrence: US)
  Receive Date: 20170111
  Receipt Date: 20170131
  Transmission Date: 20170428
  Serious: Yes (Hospitalization, Other)
  Sender: FDA-Public Use
  Company Number: US-INCYTE CORPORATION-2016IN004341

PATIENT
  Age: 61 Year
  Sex: Female
  Weight: 95.74 kg

DRUGS (20)
  1. AUGMENTIN [Concomitant]
     Active Substance: AMOXICILLIN\CLAVULANATE POTASSIUM
     Indication: UPPER RESPIRATORY TRACT CONGESTION
     Dosage: 875 MG, BID
     Dates: start: 20161013
  2. CLARITIN [Concomitant]
     Active Substance: LORATADINE
     Indication: NASAL CONGESTION
     Dosage: 10 MG, QD
     Route: 065
     Dates: start: 20150108, end: 20161012
  3. METOPROLOL. [Concomitant]
     Active Substance: METOPROLOL
     Indication: HYPERTENSION
     Dosage: 200 MG, QD
     Route: 048
     Dates: start: 20150108
  4. LEVOFLOXACIN. [Concomitant]
     Active Substance: LEVOFLOXACIN
     Dosage: 500MG, UNK
  5. VERAPAMIL [Concomitant]
     Active Substance: VERAPAMIL HYDROCHLORIDE
     Indication: HYPERTENSION
     Dosage: 180 MG, QD
     Route: 065
     Dates: start: 20161005
  6. ALLOPURINOL. [Concomitant]
     Active Substance: ALLOPURINOL
     Indication: CALCULUS URINARY
     Dosage: 100 MG, QD
     Route: 065
     Dates: start: 20150108
  7. ALBUTEROL                          /00139501/ [Concomitant]
     Active Substance: ALBUTEROL
     Indication: DYSPNOEA
     Dosage: 2.5 MG, PRN
     Dates: start: 20161013
  8. HYDROCODONE BITARTRATE AND ACETAMINOPHEN [Concomitant]
     Active Substance: ACETAMINOPHEN\HYDROCODONE BITARTRATE
     Dosage: 10-325MG, UNK
  9. JAKAFI [Suspect]
     Active Substance: RUXOLITINIB
     Indication: MYELOFIBROSIS
     Dosage: 20 MG, QD
     Route: 048
     Dates: start: 20160831
  10. FUROSEMIDE. [Concomitant]
     Active Substance: FUROSEMIDE
     Dosage: 40MG, UNK
  11. JAKAFI [Suspect]
     Active Substance: RUXOLITINIB
     Indication: POLYCYTHAEMIA VERA
     Dosage: 20 MG, BID
     Route: 048
     Dates: start: 20160602, end: 20160824
  12. ASPIRIN                            /00002701/ [Concomitant]
     Active Substance: ASPIRIN
     Indication: POLYCYTHAEMIA VERA
     Dosage: 81 MG, QD
     Route: 065
     Dates: start: 20150108
  13. NORVASC [Concomitant]
     Active Substance: AMLODIPINE BESYLATE
     Indication: HYPERTENSION
     Dosage: 5 MG, QD
     Route: 065
     Dates: start: 20150112, end: 20160908
  14. FLEXERIL                           /00821801/ [Concomitant]
     Active Substance: CEFIXIME
     Indication: MUSCULOSKELETAL PAIN
     Dosage: 10 MG, PRN
     Route: 065
     Dates: start: 20150108
  15. ZYRTEC [Concomitant]
     Active Substance: CETIRIZINE HYDROCHLORIDE
     Indication: NASAL CONGESTION
     Dosage: 10 MG, QD
     Dates: start: 20161013
  16. CLONAZEPAM. [Concomitant]
     Active Substance: CLONAZEPAM
     Dosage: 0.5MG, UNK
  17. PAXIL [Concomitant]
     Active Substance: PAROXETINE HYDROCHLORIDE
     Indication: GENERALISED ANXIETY DISORDER
  18. JAKAFI [Suspect]
     Active Substance: RUXOLITINIB
     Dosage: 10 MG, UNK
     Route: 048
     Dates: start: 20160614
  19. HYDROCHLOROTHIAZIDE. [Concomitant]
     Active Substance: HYDROCHLOROTHIAZIDE
     Indication: HYPERTENSION
     Dosage: 25 MG, QD
     Route: 065
     Dates: start: 20150108, end: 20160720
  20. PAXIL [Concomitant]
     Active Substance: PAROXETINE HYDROCHLORIDE
     Indication: DEPRESSION
     Dosage: 20 MG, QD
     Route: 065
     Dates: start: 20150108

REACTIONS (25)
  - Anaemia [Recovered/Resolved]
  - Anaemia [Not Recovered/Not Resolved]
  - Dyspnoea [Recovered/Resolved]
  - Anaemia [Recovered/Resolved]
  - Respiratory failure [Recovered/Resolved]
  - Transfusion-related circulatory overload [Recovered/Resolved]
  - Pyrexia [Not Recovered/Not Resolved]
  - Dyspnoea [Recovered/Resolved]
  - Anaemia [Recovered/Resolved]
  - Anaemia [Recovered/Resolved]
  - Fatigue [Not Recovered/Not Resolved]
  - Abdominal pain [Not Recovered/Not Resolved]
  - Anaemia [Recovered/Resolved]
  - Anaemia [Recovered/Resolved]
  - Pain in extremity [Not Recovered/Not Resolved]
  - Diarrhoea [Not Recovered/Not Resolved]
  - Dyspnoea [Recovered/Resolved]
  - Fatigue [Recovered/Resolved]
  - Anaemia [Recovered/Resolved]
  - Anaemia [Recovered/Resolved]
  - Anaemia [Recovered/Resolved]
  - Anaemia [Recovered/Resolved]
  - Paranasal sinus hypersecretion [Recovered/Resolved]
  - Thrombocytopenia [Recovered/Resolved]
  - Anaemia [Recovered/Resolved]

NARRATIVE: CASE EVENT DATE: 2016
